FAERS Safety Report 9228498 (Version 1)
Quarter: 2013Q2

REPORT INFORMATION
  Report Type: Spontaneous
  Country: ES (occurrence: ES)
  Receive Date: 20130412
  Receipt Date: 20130412
  Transmission Date: 20140414
  Serious: Yes (Other)
  Sender: FDA-Public Use
  Company Number: ES-GLAXOSMITHKLINE-B0880177A

PATIENT
  Age: 5 Year
  Sex: Male

DRUGS (3)
  1. ZINNAT [Suspect]
     Indication: EAR INFECTION
     Route: 048
     Dates: start: 20130322
  2. TOBRADEX [Suspect]
     Indication: PRODUCT USED FOR UNKNOWN INDICATION
     Route: 065
     Dates: start: 20130322
  3. OXYMETAZOLINE NASAL SPRAY [Suspect]
     Indication: PRODUCT USED FOR UNKNOWN INDICATION
     Route: 065
     Dates: start: 201303

REACTIONS (1)
  - Petechiae [Not Recovered/Not Resolved]
